FAERS Safety Report 6935200-X (Version None)
Quarter: 2010Q3

REPORT INFORMATION
  Report Type: 
  Country: None (occurrence: None)
  Receive Date: 20100822
  Receipt Date: 20100817
  Transmission Date: 20110219
  Serious: Yes (Death, Hospitalization, Other)
  Sender: FDA-Public Use
  Company Number: PHHY2010BR54507

PATIENT
  Sex: Male

DRUGS (2)
  1. FORASEQ [Suspect]
     Indication: DYSPNOEA
  2. FELDENE [Concomitant]
     Indication: BONE PAIN

REACTIONS (3)
  - LUNG NEOPLASM MALIGNANT [None]
  - NEOPLASM PROGRESSION [None]
  - RESPIRATORY FAILURE [None]
